FAERS Safety Report 14855473 (Version 1)
Quarter: 2018Q2

REPORT INFORMATION
  Report Type: Spontaneous
  Country: US (occurrence: US)
  Receive Date: 20180507
  Receipt Date: 20180507
  Transmission Date: 20180711
  Serious: No
  Sender: FDA-Public Use
  Company Number: US-ROCHE-1983466

PATIENT
  Age: 79 Year
  Sex: Female
  Weight: 77.63 kg

DRUGS (8)
  1. ESBRIET [Suspect]
     Active Substance: PIRFENIDONE
     Indication: IDIOPATHIC PULMONARY FIBROSIS
     Dosage: 1 CAPSULES THRICE A DAY
     Route: 048
     Dates: start: 20170720
  2. ESBRIET [Suspect]
     Active Substance: PIRFENIDONE
     Dosage: 3 CAPSULE THRICE A DAY
     Route: 048
     Dates: start: 20170721, end: 20170821
  3. ATORVASTATIN [Concomitant]
     Active Substance: ATORVASTATIN
     Indication: BLOOD CHOLESTEROL
     Dosage: BEEN TAKING FOR 5-6YEARS
     Route: 048
  4. ESBRIET [Suspect]
     Active Substance: PIRFENIDONE
     Dosage: 1 CAPSULE THRICE A DAY
     Route: 048
     Dates: start: 20170829
  5. BABY ASPIRIN [Concomitant]
     Active Substance: ASPIRIN
     Route: 048
     Dates: start: 2012
  6. ESBRIET [Suspect]
     Active Substance: PIRFENIDONE
     Route: 048
     Dates: end: 20170828
  7. ULTIMATE FLORA [Concomitant]
     Active Substance: PROBIOTICS NOS
     Route: 048
     Dates: start: 2016
  8. PLAVIX [Concomitant]
     Active Substance: CLOPIDOGREL BISULFATE
     Indication: MYOCARDIAL INFARCTION

REACTIONS (7)
  - Insomnia [Unknown]
  - Feeling abnormal [Recovering/Resolving]
  - Feeling abnormal [Unknown]
  - Asthenia [Recovering/Resolving]
  - Decreased interest [Recovering/Resolving]
  - Fatigue [Unknown]
  - Malaise [Unknown]

NARRATIVE: CASE EVENT DATE: 20170822
